FAERS Safety Report 4385485-1 (Version None)
Quarter: 2004Q2

REPORT INFORMATION
  Report Type: 
  Country: None (occurrence: None)
  Receive Date: 20040622
  Receipt Date: 20040609
  Transmission Date: 20050107
  Serious: Yes (Life-Threatening)
  Sender: FDA-Public Use
  Company Number: ES-2004-026686

PATIENT
  Sex: 0

DRUGS (1)
  1. ULTRAVIST/ CLAROGRAF 300 (500 ML)  (IOPROMIDE) INJECTION [Suspect]
     Dates: start: 20040527, end: 20040527

REACTIONS (3)
  - CARDIO-RESPIRATORY ARREST [None]
  - CONTRAST MEDIA REACTION [None]
  - RESPIRATORY DEPRESSION [None]
